FAERS Safety Report 4969938-0 (Version None)
Quarter: 2006Q1

REPORT INFORMATION
  Report Type: 
  Country: None (occurrence: None)
  Receive Date: 20060202
  Receipt Date: 20050204
  Transmission Date: 20060701
  Serious: Yes (Other)
  Sender: FDA-Public Use
  Company Number: PHEH2004US12534

PATIENT
  Age: 6 Year
  Sex: Male
  Weight: 38.1 kg

DRUGS (2)
  1. RITALIN [Suspect]
     Indication: ATTENTION DEFICIT/HYPERACTIVITY DISORDER
     Dosage: 5 MG, BID
     Dates: start: 20041111, end: 20041115
  2. RITALIN [Suspect]
     Indication: PSYCHOMOTOR HYPERACTIVITY
     Dosage: 5 MG, BID
     Dates: start: 20041111, end: 20041115

REACTIONS (6)
  - ABNORMAL BEHAVIOUR [None]
  - AGGRESSION [None]
  - EYE ROLLING [None]
  - HEADACHE [None]
  - PSYCHOMOTOR HYPERACTIVITY [None]
  - PSYCHOTIC DISORDER [None]
